FAERS Safety Report 8906144 (Version 1)
Quarter: 2012Q4

REPORT INFORMATION
  Report Type: 
  Country: US (occurrence: US)
  Receive Date: 20121110
  Receipt Date: 20121110
  Transmission Date: 20130627
  Serious: No
  Sender: FDA-Public Use
  Company Number: US-009507513-1211USA004222

PATIENT
  Sex: Male

DRUGS (8)
  1. PEGINTRON [Suspect]
     Indication: HEPATITIS B
     Dosage: 150 Microgram, qw
     Dates: start: 20120901
  2. RIBAPAK [Suspect]
     Dosage: 600 mg, bid
  3. SINGULAIR [Concomitant]
     Dosage: 10 mg, UNK
  4. COREG [Concomitant]
     Dosage: 6.25 mg, qid
  5. PANTOPRAZOLE [Concomitant]
     Dosage: 40 mg, bid
  6. LATANOPROST [Concomitant]
  7. DAPSONE [Concomitant]
     Dosage: 100 mg, qd
  8. MILK THISTLE [Concomitant]
     Dosage: Supplement

REACTIONS (2)
  - Fatigue [Unknown]
  - Haemoglobin decreased [Unknown]
